FAERS Safety Report 6892297-3 (Version None)
Quarter: 2010Q3

REPORT INFORMATION
  Report Type: 
  Country: None (occurrence: None)
  Receive Date: 20100731
  Receipt Date: 20080324
  Transmission Date: 20110219
  Serious: Yes (Other)
  Sender: FDA-Public Use
  Company Number: US-PFIZER INC-2008026362

PATIENT
  Sex: Male
  Weight: 70.454 kg

DRUGS (2)
  1. NEURONTIN [Suspect]
     Indication: EPILEPSY
     Dates: start: 19990101
  2. VITAMINS [Concomitant]

REACTIONS (1)
  - EPILEPSY [None]
